FAERS Safety Report 25722799 (Version 1)
Quarter: 2025Q3

REPORT INFORMATION
  Report Type: Spontaneous
  Country: KR (occurrence: KR)
  Receive Date: 20250825
  Receipt Date: 20250825
  Transmission Date: 20251021
  Serious: Yes (Other)
  Sender: DAIICHI
  Company Number: KR-DSJP-DS-2025-160499-KR

PATIENT
  Sex: Male

DRUGS (1)
  1. EDOXABAN [Suspect]
     Active Substance: EDOXABAN
     Indication: Product used for unknown indication
     Route: 065
     Dates: start: 20220420, end: 20220520

REACTIONS (2)
  - Renal function test abnormal [Recovering/Resolving]
  - Gingival bleeding [Recovering/Resolving]

NARRATIVE: CASE EVENT DATE: 20220420
